FAERS Safety Report 13489262 (Version 2)
Quarter: 2017Q2

REPORT INFORMATION
  Report Type: Report from Study
  Country: CA (occurrence: CA)
  Receive Date: 20170427
  Receipt Date: 20170609
  Transmission Date: 20170830
  Serious: Yes (Other)
  Sender: FDA-Public Use
  Company Number: CA-BRISTOL-MYERS SQUIBB COMPANY-BMS-2014-008216

PATIENT
  Age: 79 Year
  Sex: Female

DRUGS (1)
  1. ABATACEPT [Suspect]
     Active Substance: ABATACEPT
     Indication: PALINDROMIC RHEUMATISM
     Dosage: 750 MG, Q4WK
     Route: 058

REACTIONS (2)
  - Product use in unapproved indication [Unknown]
  - Gouty arthritis [Recovered/Resolved]

NARRATIVE: CASE EVENT DATE: 20170412
